FAERS Safety Report 8300467-2 (Version None)
Quarter: 2012Q2

REPORT INFORMATION
  Report Type: 
  Country: None (occurrence: None)
  Receive Date: 20120420
  Receipt Date: 20120410
  Transmission Date: 20120825
  Serious: Yes (Other)
  Sender: FDA-Public Use
  Company Number: IL-JNJFOC-20110811953

PATIENT
  Age: 59 Year
  Sex: Female

DRUGS (1)
  1. DOXORUBICIN HCL [Suspect]
     Indication: KAPOSI'S SARCOMA
     Route: 042
     Dates: start: 20061101

REACTIONS (2)
  - MUCOSAL INFLAMMATION [None]
  - LIP AND/OR ORAL CAVITY CANCER [None]
